FAERS Safety Report 15725544 (Version 1)
Quarter: 2018Q4

REPORT INFORMATION
  Report Type: Spontaneous
  Country: GB (occurrence: GB)
  Receive Date: 20181215
  Receipt Date: 20181215
  Transmission Date: 20190205
  Serious: Yes (Other)
  Sender: FDA-Public Use
  Company Number: GB-TEVA-2018-GB-986572

PATIENT
  Age: 26 Year
  Sex: Female
  Weight: 92 kg

DRUGS (2)
  1. DOXYCYCLINE. [Concomitant]
     Active Substance: DOXYCYCLINE
     Dosage: TAKE TWO  IMMEDIATELY THEN ONE ONCE A DAY
     Dates: start: 20181116
  2. COCODAMOL [Suspect]
     Active Substance: ACETAMINOPHEN\CODEINE PHOSPHATE
     Dosage: 30MG/500MG
     Route: 065
     Dates: start: 20181116

REACTIONS (2)
  - Chest discomfort [Not Recovered/Not Resolved]
  - Dizziness [Unknown]

NARRATIVE: CASE EVENT DATE: 20181116
